FAERS Safety Report 6520532-X (Version None)
Quarter: 2009Q4

REPORT INFORMATION
  Report Type: 
  Country: None (occurrence: None)
  Receive Date: 20091229
  Receipt Date: 20091216
  Transmission Date: 20100525
  Serious: Yes (Hospitalization)
  Sender: FDA-Public Use
  Company Number: B0621294A

PATIENT
  Sex: Female
  Weight: 62.5 kg

DRUGS (4)
  1. LAPATINIB [Suspect]
     Dates: start: 20091118
  2. CISPLATIN [Suspect]
     Dosage: 118MG WEEKLY
     Dates: start: 20091118
  3. FRAXODI [Concomitant]
     Indication: THROMBOSIS
     Dosage: 11400IU PER DAY
     Route: 058
     Dates: start: 20091204
  4. LOPERAMIDE [Concomitant]
     Dosage: 2MG PER DAY
     Route: 048
     Dates: start: 20091201

REACTIONS (3)
  - HYPOMAGNESAEMIA [None]
  - NEUTROPENIA [None]
  - THROMBOCYTOPENIA [None]
